FAERS Safety Report 6090630-6 (Version None)
Quarter: 2009Q1

REPORT INFORMATION
  Report Type: 
  Country: None (occurrence: None)
  Receive Date: 20090224
  Receipt Date: 20090112
  Transmission Date: 20090719
  Serious: No
  Sender: FDA-Public Use
  Company Number: US-ABBOTT-09P-163-0496977-00

PATIENT
  Sex: Female

DRUGS (2)
  1. SIMCOR [Suspect]
     Indication: BLOOD CHOLESTEROL INCREASED
     Dosage: 500/20MG INCREASED TO 2 TABLETS OF 500/20MG
     Route: 048
     Dates: start: 20081201
  2. SIMCOR [Suspect]
     Indication: BLOOD TRIGLYCERIDES
     Route: 048

REACTIONS (1)
  - BLOOD GLUCOSE INCREASED [None]
